FAERS Safety Report 25767476 (Version 1)
Quarter: 2025Q3

REPORT INFORMATION
  Report Type: Spontaneous
  Country: EU (occurrence: EU)
  Receive Date: 20250905
  Receipt Date: 20250905
  Transmission Date: 20251021
  Serious: Yes (Hospitalization, Other)
  Sender: SANDOZ
  Company Number: EU-SUN PHARMACEUTICAL INDUSTRIES LTD-

PATIENT
  Age: 42 Year
  Sex: Female

DRUGS (21)
  1. AMLODIPINE\PERINDOPRIL [Suspect]
     Active Substance: AMLODIPINE\PERINDOPRIL
     Indication: Hypertension
     Dosage: 10 MG, QD
     Route: 065
  2. DECADRON (DEXAMETHASONE SODIUM PHOSPHATE) [Suspect]
     Active Substance: DEXAMETHASONE SODIUM PHOSPHATE
     Indication: Vomiting
     Route: 065
  3. DECADRON (DEXAMETHASONE SODIUM PHOSPHATE) [Suspect]
     Active Substance: DEXAMETHASONE SODIUM PHOSPHATE
     Indication: Nausea
  4. DIMENHYDRINATE [Suspect]
     Active Substance: DIMENHYDRINATE
     Indication: Nausea
     Route: 065
  5. DIMENHYDRINATE [Suspect]
     Active Substance: DIMENHYDRINATE
     Indication: Vomiting
  6. METOCLOPRAMIDE [Suspect]
     Active Substance: METOCLOPRAMIDE
     Indication: Vomiting
     Route: 065
  7. METOCLOPRAMIDE [Suspect]
     Active Substance: METOCLOPRAMIDE
     Indication: Nausea
  8. DIMENHYDRINATE [Concomitant]
     Active Substance: DIMENHYDRINATE
     Indication: Nausea
     Route: 065
  9. METOCLOPRAMIDE [Concomitant]
     Active Substance: METOCLOPRAMIDE
     Indication: Nausea
     Route: 065
  10. MIDAZOLAM [Concomitant]
     Active Substance: MIDAZOLAM
     Indication: Product used for unknown indication
     Route: 042
  11. AMLODIPINE [Interacting]
     Active Substance: AMLODIPINE BESYLATE
     Indication: Hypertension
     Route: 065
  12. CIPROFLOXACIN [Interacting]
     Active Substance: CIPROFLOXACIN
     Indication: Palliative care
     Dosage: 500 MG, BID
     Route: 048
  13. DULOXETINE [Interacting]
     Active Substance: DULOXETINE
     Indication: Hypertension
     Dosage: 90 MG, QD
     Route: 065
  14. MORPHINE [Interacting]
     Active Substance: MORPHINE
     Indication: Breast cancer
     Dosage: 80 MG, Q12H
     Route: 065
  15. MORPHINE [Interacting]
     Active Substance: MORPHINE
     Indication: Hypertension
  16. OLANZAPINE [Interacting]
     Active Substance: OLANZAPINE
     Indication: Vomiting
     Dosage: 10 MG, QD
     Route: 065
  17. OLANZAPINE [Interacting]
     Active Substance: OLANZAPINE
     Indication: Antiemetic supportive care
     Dosage: 5 MG
     Route: 065
  18. PERINDOPRIL [Interacting]
     Active Substance: PERINDOPRIL
     Indication: Hypertension
     Route: 065
  19. PREGABALIN [Interacting]
     Active Substance: PREGABALIN
     Indication: Hypertension
     Dosage: 300 MG, QD
     Route: 065
  20. PREGABALIN [Interacting]
     Active Substance: PREGABALIN
     Indication: Product used for unknown indication
  21. QUETIAPINE [Interacting]
     Active Substance: QUETIAPINE
     Indication: Hypertension
     Dosage: 25 MG, QD, AT NIGHT
     Route: 065

REACTIONS (13)
  - Anxiety [Not Recovered/Not Resolved]
  - Thirst [Not Recovered/Not Resolved]
  - Polydipsia [Unknown]
  - Urinary retention [Not Recovered/Not Resolved]
  - Dysuria [Unknown]
  - Vomiting [Not Recovered/Not Resolved]
  - Nausea [Recovering/Resolving]
  - Paraesthesia [Not Recovered/Not Resolved]
  - Tinnitus [Not Recovered/Not Resolved]
  - Drug interaction [Not Recovered/Not Resolved]
  - Drug ineffective [Unknown]
  - Drug ineffective for unapproved indication [Unknown]
  - Off label use [Unknown]
